FAERS Safety Report 9445337 (Version 1)
Quarter: 2013Q3

REPORT INFORMATION
  Report Type: Spontaneous
  Country: US (occurrence: US)
  Receive Date: 20130807
  Receipt Date: 20130807
  Transmission Date: 20140515
  Serious: No
  Sender: FDA-Public Use
  Company Number: US-BAXTER-2013BAX025645

PATIENT
  Sex: Male

DRUGS (3)
  1. 70% DEXTROSE INJECTION USP [Suspect]
     Indication: PARENTERAL NUTRITION
  2. INTRALIPID [Suspect]
     Indication: PARENTERAL NUTRITION
  3. FREAMINE [Suspect]
     Indication: PARENTERAL NUTRITION

REACTIONS (3)
  - Product quality issue [Recovered/Resolved]
  - Poor quality drug administered [Recovered/Resolved]
  - No adverse event [Recovered/Resolved]
